FAERS Safety Report 5763511-2 (Version None)
Quarter: 2008Q2

REPORT INFORMATION
  Report Type: 
  Country: None (occurrence: None)
  Receive Date: 20080610
  Receipt Date: 20080603
  Transmission Date: 20081010
  Serious: Yes (Other)
  Sender: FDA-Public Use
  Company Number: US-RANBAXY-2008US-15163

PATIENT

DRUGS (1)
  1. ACCUTANE [Suspect]
     Dosage: 40 MG, BID
     Route: 048
     Dates: start: 20071201, end: 20080420

REACTIONS (2)
  - BLINDNESS [None]
  - DRY EYE [None]
